FAERS Safety Report 9825425 (Version 1)
Quarter: 2013Q4

REPORT INFORMATION
  Report Type: Spontaneous
  Country: US (occurrence: None)
  Receive Date: 20131223
  Receipt Date: 20131223
  Transmission Date: 20140711
  Serious: Yes (Other)
  Sender: FDA-Public Use
  Company Number: 219328LEO

PATIENT
  Sex: Female

DRUGS (2)
  1. PICATO [Suspect]
     Indication: ACTINIC KERATOSIS
     Route: 061
     Dates: start: 20121007
  2. ATENOLOL (ATENOLOL) [Concomitant]

REACTIONS (6)
  - Application site pain [None]
  - Application site swelling [None]
  - Hypoaesthesia [None]
  - Blister [None]
  - Eyelid oedema [None]
  - Incorrect drug administration duration [None]
